FAERS Safety Report 22288723 (Version 1)
Quarter: 2023Q2

REPORT INFORMATION
  Report Type: Spontaneous
  Country: CA (occurrence: CA)
  Receive Date: 20230505
  Receipt Date: 20230505
  Transmission Date: 20230721
  Serious: Yes (Hospitalization, Other)
  Sender: FDA-Public Use
  Company Number: CA-MLMSERVICE-20230419-4223759-1

PATIENT
  Age: 3 Decade
  Sex: Female

DRUGS (1)
  1. FENTANYL [Suspect]
     Active Substance: FENTANYL
     Indication: Product used for unknown indication
     Dosage: UNKNOWN
     Route: 042

REACTIONS (7)
  - Judgement impaired [Recovering/Resolving]
  - Emotional disorder [Recovering/Resolving]
  - Drug dependence [Recovering/Resolving]
  - Drug use disorder [Recovering/Resolving]
  - Drug withdrawal syndrome [Recovering/Resolving]
  - Intentional overdose [Recovering/Resolving]
  - Treatment noncompliance [Recovered/Resolved]
